FAERS Safety Report 7916365-X (Version None)
Quarter: 2011Q4

REPORT INFORMATION
  Report Type: 
  Country: None (occurrence: None)
  Receive Date: 20111116
  Receipt Date: 20111110
  Transmission Date: 20120403
  Serious: No
  Sender: FDA-Public Use
  Company Number: US-BIOGENIDEC-2011BI043198

PATIENT
  Sex: Female

DRUGS (3)
  1. TYSABRI [Suspect]
     Indication: MULTIPLE SCLEROSIS
     Route: 042
     Dates: start: 20101217, end: 20110715
  2. TYSABRI [Suspect]
     Route: 042
     Dates: start: 20080822, end: 20090311
  3. TYSABRI [Suspect]
     Route: 042
     Dates: start: 20090729, end: 20100408

REACTIONS (1)
  - VISION BLURRED [None]
